FAERS Safety Report 10063554 (Version 1)
Quarter: 2014Q1

REPORT INFORMATION
  Report Type: Spontaneous
  Country: US (occurrence: None)
  Receive Date: 20140328
  Receipt Date: 20140328
  Transmission Date: 20141002
  Serious: Yes (Hospitalization)
  Sender: FDA-Public Use
  Company Number: PHEH2013US026285

PATIENT
  Age: 81 Year
  Sex: Female

DRUGS (1)
  1. AFINITOR (RAD) UNKNOWN [Suspect]
     Dates: start: 201308

REACTIONS (6)
  - Pneumonia [None]
  - Hypersensitivity [None]
  - Diabetes mellitus [None]
  - Decreased appetite [None]
  - Hypertension [None]
  - Dyspnoea [None]
